FAERS Safety Report 18366206 (Version 2)
Quarter: 2020Q4

REPORT INFORMATION
  Report Type: Report from Study
  Country: JP (occurrence: JP)
  Receive Date: 20201009
  Receipt Date: 20201012
  Transmission Date: 20210114
  Serious: Yes (Death, Life-Threatening)
  Sender: FDA-Public Use
  Company Number: JP-ASTELLAS-2020JP014933

PATIENT
  Age: 75 Year
  Sex: Female
  Weight: 53 kg

DRUGS (26)
  1. TEICOPLANIN [Concomitant]
     Active Substance: TEICOPLANIN
     Route: 042
     Dates: start: 20201003
  2. CYTARABINE. [Suspect]
     Active Substance: CYTARABINE
     Dosage: CONSOLIDATION THERAPY: DAY1, DAY3, DAY5 WAS 1.5 G/M2, TWICE DAIL
     Route: 042
     Dates: start: 20200909, end: 20200916
  3. FUROSEMIDE. [Concomitant]
     Active Substance: FUROSEMIDE
     Dosage: UNK UNK, UNKNOWN FREQ.
     Route: 042
     Dates: start: 20200927, end: 20201002
  4. ASTOMIN [ASTEMIZOLE] [Concomitant]
     Indication: PRODUCT USED FOR UNKNOWN INDICATION
     Dosage: UNK UNK, UNKNOWN FREQ.
     Route: 065
     Dates: start: 20200909
  5. CYTARABINE. [Suspect]
     Active Substance: CYTARABINE
     Indication: ACUTE MYELOID LEUKAEMIA
     Dosage: REMISSION INDUCTION THERAPY: 100 MG/M2, ONCE DAILY
     Route: 042
     Dates: start: 20200909, end: 20200916
  6. FUROSEMIDE. [Concomitant]
     Active Substance: FUROSEMIDE
     Dosage: 2 ML/H, CONTINUOUS ADMINISTRATION
     Route: 042
     Dates: start: 20201004
  7. SOLU-CORTEF [Concomitant]
     Active Substance: HYDROCORTISONE SODIUM SUCCINATE
     Indication: FEBRILE NEUTROPENIA
     Dosage: 100 MG, TWICE DAILY, AT THE TIME OF FEVER
     Route: 042
     Dates: start: 20200924
  8. TEICOPLANIN [Concomitant]
     Active Substance: TEICOPLANIN
     Indication: FEBRILE NEUTROPENIA
     Route: 042
     Dates: start: 20201001, end: 20201002
  9. IDARUBICIN HYDROCHLORIDE. [Concomitant]
     Active Substance: IDARUBICIN HYDROCHLORIDE
     Indication: PRODUCT USED FOR UNKNOWN INDICATION
     Dosage: UNK UNK, UNKNOWN FREQ.
     Route: 065
  10. LIXIANA OD [Concomitant]
     Active Substance: EDOXABAN TOSYLATE
     Indication: PULMONARY EMBOLISM
     Route: 048
     Dates: end: 20201005
  11. LIXIANA OD [Concomitant]
     Active Substance: EDOXABAN TOSYLATE
     Indication: DEEP VEIN THROMBOSIS
  12. LANSOPRAZOLE. [Concomitant]
     Active Substance: LANSOPRAZOLE
     Indication: PROPHYLAXIS AGAINST GASTROINTESTINAL ULCER
     Route: 048
     Dates: end: 20201005
  13. HEPARINOID [Concomitant]
     Active Substance: CHONDROITIN SULFATE (BOVINE)
     Indication: DRY SKIN
     Dosage: UNK UNK, THRICE DAILY, DRY AREA
     Route: 061
     Dates: start: 20200919
  14. TAZOPIPE [Concomitant]
     Active Substance: PIPERACILLIN SODIUM\TAZOBACTAM SODIUM
     Indication: FEBRILE NEUTROPENIA
     Route: 042
     Dates: start: 20201004
  15. AMOXICILLIN HYDRATE [Concomitant]
     Active Substance: AMOXICILLIN
     Indication: ACUTE SINUSITIS
     Dosage: UNK UNK, UNKNOWN FREQ.
     Route: 065
     Dates: start: 20200916
  16. MEROPENEM. [Concomitant]
     Active Substance: MEROPENEM
     Indication: FEBRILE NEUTROPENIA
     Route: 042
     Dates: start: 20200925, end: 20201004
  17. ASP2215 [Suspect]
     Active Substance: GILTERITINIB
     Indication: ACUTE MYELOID LEUKAEMIA
     Route: 065
     Dates: start: 20200916, end: 20200929
  18. AZULENE [Concomitant]
     Active Substance: AZULENE
     Indication: INFECTION PROPHYLAXIS
     Dosage: UNK UNK, UNKNOWN FREQ., GARGLE SEVERAL TIMES A DAY
     Route: 048
     Dates: start: 20200905
  19. PROPETO [Concomitant]
     Active Substance: PETROLATUM
     Indication: LIP DRY
     Dosage: UNK UNK, UNKNOWN FREQ., LIP APPLICATION SEVERAL TIMES A DAY
     Route: 061
     Dates: start: 20200905
  20. CARBOCISTEINE [Concomitant]
     Active Substance: CARBOCYSTEINE
     Indication: PRODUCT USED FOR UNKNOWN INDICATION
     Dosage: UNK UNK, UNKNOWN FREQ.
     Route: 065
     Dates: start: 20200917
  21. XYLOCAINE #1 [Concomitant]
     Active Substance: LIDOCAINE
     Indication: INFECTION PROPHYLAXIS
     Dosage: UNK UNK, UNKNOWN FREQ., GARGLE SEVERAL TIMES A DAY
     Route: 048
     Dates: start: 20201002
  22. FUNGUARD [Concomitant]
     Active Substance: MICAFUNGIN SODIUM
     Indication: FEBRILE NEUTROPENIA
     Route: 042
     Dates: start: 20200924, end: 20201004
  23. ACELIO [Concomitant]
     Active Substance: ACETAMINOPHEN
     Indication: FEBRILE NEUTROPENIA
     Dosage: 1000 MG, AS NEEDED, AT THE TIME OF FEVER
     Route: 042
     Dates: start: 20201003
  24. FUROSEMIDE. [Concomitant]
     Active Substance: FUROSEMIDE
     Indication: PROPHYLAXIS
     Dosage: UNK UNK, UNKNOWN FREQ.
     Route: 042
     Dates: start: 20200909, end: 20200910
  25. FILGRASTIM BS [FILGRASTIM BIOSIMILAR 1] [Concomitant]
     Indication: NEUTROPHIL COUNT DECREASED
     Dosage: 300 ?G, ONCE DAILY, IN AN HOUR
     Route: 041
     Dates: start: 20200924
  26. KCL [Concomitant]
     Active Substance: POTASSIUM CHLORIDE
     Indication: HYPOKALAEMIA
     Dosage: MIXED INTO THE MAIN INFUSION AND CONTINUOUSLY ADMINISTERED AT 20 ML-40 ML/H
     Route: 042
     Dates: start: 20200927

REACTIONS (2)
  - Pneumonia [Fatal]
  - Cardiac failure [Fatal]

NARRATIVE: CASE EVENT DATE: 20201004
